FAERS Safety Report 19633743 (Version 1)
Quarter: 2021Q3

REPORT INFORMATION
  Report Type: Spontaneous
  Country: US (occurrence: US)
  Receive Date: 20210729
  Receipt Date: 20210729
  Transmission Date: 20211014
  Serious: Yes (Other)
  Sender: FDA-Public Use
  Company Number: None

PATIENT
  Age: 76 Year
  Sex: Female
  Weight: 73.35 kg

DRUGS (18)
  1. MIRALAX [Concomitant]
     Active Substance: POLYETHYLENE GLYCOL 3350
  2. FERROUS SULFATE. [Concomitant]
     Active Substance: FERROUS SULFATE
  3. LETROZOLE. [Concomitant]
     Active Substance: LETROZOLE
  4. REMERON [Concomitant]
     Active Substance: MIRTAZAPINE
  5. CARVEDILOL. [Concomitant]
     Active Substance: CARVEDILOL
  6. AMLODIPINE [Concomitant]
     Active Substance: AMLODIPINE BESYLATE
  7. VERZENIO [Suspect]
     Active Substance: ABEMACICLIB
     Indication: BREAST CANCER
     Route: 048
     Dates: start: 20200410
  8. K?TAB [Concomitant]
     Active Substance: POTASSIUM CHLORIDE
  9. LOSARTAN AND HYDROCHLOROTHIAZIDE [Concomitant]
     Active Substance: HYDROCHLOROTHIAZIDE\LOSARTAN POTASSIUM
  10. PRAVASTATIN. [Concomitant]
     Active Substance: PRAVASTATIN
  11. VITAMIN B12 [Concomitant]
     Active Substance: CYANOCOBALAMIN
  12. CYPROHEPTADINE. [Concomitant]
     Active Substance: CYPROHEPTADINE
  13. ONDANSETRON [Concomitant]
     Active Substance: ONDANSETRON
  14. VITAMIN D [Concomitant]
     Active Substance: VITAMIN D NOS
  15. METFORMIN [Concomitant]
     Active Substance: METFORMIN HYDROCHLORIDE
  16. GABAPENTIN. [Concomitant]
     Active Substance: GABAPENTIN
  17. FAMOTIDINE. [Concomitant]
     Active Substance: FAMOTIDINE
  18. SILVADENE [Concomitant]
     Active Substance: SILVER SULFADIAZINE

REACTIONS (2)
  - Renal disorder [None]
  - Red blood cell count decreased [None]

NARRATIVE: CASE EVENT DATE: 20210729
